FAERS Safety Report 6717616-X (Version None)
Quarter: 2010Q2

REPORT INFORMATION
  Report Type: 
  Country: None (occurrence: None)
  Receive Date: 20100510
  Receipt Date: 20100428
  Transmission Date: 20101027
  Serious: Yes (Other)
  Sender: FDA-Public Use
  Company Number: CH-WYE-H14937010

PATIENT
  Age: 79 Year
  Sex: Male

DRUGS (12)
  1. CORDARONE [Suspect]
     Indication: ATRIAL FIBRILLATION
     Route: 048
  2. CORDARONE [Interacting]
     Indication: ATRIAL FLUTTER
  3. CITALOPRAM HYDROBROMIDE [Concomitant]
     Dosage: UNSPECIFIED
  4. DIOVAN HCT [Concomitant]
     Dosage: UNSPECIFIED
  5. ANXIOLIT [Concomitant]
     Dosage: UNSPECIFIED
  6. AMLODIPINE BESYLATE [Interacting]
     Indication: ESSENTIAL HYPERTENSION
     Route: 048
  7. NEURONTIN [Concomitant]
     Dosage: UNSPECIFIED
  8. FLECTOR [Concomitant]
     Dosage: UNSPECIFIED
  9. RISPERDAL [Interacting]
     Route: 048
     Dates: start: 20100305, end: 20100308
  10. ATORVASTATIN CALCIUM [Interacting]
     Indication: HYPERCHOLESTEROLAEMIA
     Route: 048
  11. HUMALOG [Concomitant]
     Dosage: UNSPECIFIED
  12. TORASEMIDE [Concomitant]
     Dosage: UNSPECIFIED
     Dates: start: 20100301

REACTIONS (3)
  - DRUG INTERACTION [None]
  - RENAL FAILURE [None]
  - RHABDOMYOLYSIS [None]
